FAERS Safety Report 8863361 (Version 1)
Quarter: 2012Q4

REPORT INFORMATION
  Report Type: 
  Country: CN (occurrence: CN)
  Receive Date: 20121025
  Receipt Date: 20121025
  Transmission Date: 20130627
  Serious: Yes (Other)
  Sender: FDA-Public Use
  Company Number: CN-VIIV HEALTHCARE LIMITED-B0839971A

PATIENT
  Age: 24 Year
  Sex: Male
  Weight: 60 kg

DRUGS (1)
  1. LAMIVUDINE-HIV [Suspect]
     Indication: VIRAL INFECTION
     Dosage: 300MG Per day
     Route: 048
     Dates: start: 20110504, end: 20110505

REACTIONS (3)
  - Anaphylactoid reaction [Recovering/Resolving]
  - Rash [Recovering/Resolving]
  - Pruritus [Recovering/Resolving]
